FAERS Safety Report 17214867 (Version 1)
Quarter: 2019Q4

REPORT INFORMATION
  Report Type: Spontaneous
  Country: US (occurrence: US)
  Receive Date: 20191206
  Receipt Date: 20191206
  Transmission Date: 20200122
  Serious: No
  Sender: FDA-Public Use
  Company Number: None

PATIENT
  Age: 77 Year

DRUGS (1)
  1. TACROLIMUS 1MG TAB [Suspect]
     Active Substance: TACROLIMUS
     Indication: TRANSPLANT
     Dosage: 1 MG CAP 4 CAPSULES 2X A DAY ORALLY
     Route: 048
     Dates: start: 20180406

REACTIONS (1)
  - Ear infection [None]

NARRATIVE: CASE EVENT DATE: 20191205
